FAERS Safety Report 5067854-X (Version None)
Quarter: 2006Q3

REPORT INFORMATION
  Report Type: 
  Country: None (occurrence: None)
  Receive Date: 20060728
  Receipt Date: 20060713
  Transmission Date: 20061208
  Serious: Yes (Death, Hospitalization)
  Sender: FDA-Public Use
  Company Number: IT200607002804

PATIENT
  Age: 65 Year
  Sex: Female

DRUGS (2)
  1. FORTEO [Suspect]
     Indication: OSTEOPOROTIC FRACTURE
     Dosage: 20 UG DAILY (1/D) SUBCUTANEOUS
     Route: 058
     Dates: start: 20051201
  2. FORTEO PEN (FORTEO PEN) [Concomitant]

REACTIONS (3)
  - ACUTE PROMYELOCYTIC LEUKAEMIA [None]
  - CEREBRAL HAEMORRHAGE [None]
  - DERMATITIS [None]
